FAERS Safety Report 25877223 (Version 3)
Quarter: 2025Q4

REPORT INFORMATION
  Report Type: Report from Study
  Country: US (occurrence: US)
  Receive Date: 20251003
  Receipt Date: 20251225
  Transmission Date: 20260118
  Serious: Yes (Hospitalization, Other)
  Sender: TAKEDA
  Company Number: US-TAKEDA-2025TUS085583

PATIENT
  Age: 68 Year
  Sex: Female

DRUGS (2)
  1. FRUQUINTINIB [Suspect]
     Active Substance: FRUQUINTINIB
     Indication: Rectosigmoid cancer
     Dosage: 1 MILLIGRAM, QD
     Dates: start: 20250808
  2. FRUQUINTINIB [Suspect]
     Active Substance: FRUQUINTINIB
     Dosage: 5 MILLIGRAM, QD

REACTIONS (10)
  - Nephrolithiasis [Unknown]
  - Device related infection [Unknown]
  - Blood potassium decreased [Unknown]
  - Pain [Unknown]
  - Frustration tolerance decreased [Unknown]
  - Rash erythematous [Unknown]
  - Fatigue [Unknown]
  - Platelet count decreased [Unknown]
  - Blood pressure increased [Unknown]
  - Asthenia [Unknown]
